FAERS Safety Report 16346662 (Version 1)
Quarter: 2019Q2

REPORT INFORMATION
  Report Type: Spontaneous
  Country: JP (occurrence: JP)
  Receive Date: 20190523
  Receipt Date: 20190523
  Transmission Date: 20190711
  Serious: Yes (Other)
  Sender: FDA-Public Use
  Company Number: JP-ACCORD-128750

PATIENT
  Age: 63 Year
  Sex: Male

DRUGS (2)
  1. FLUOROURACIL. [Suspect]
     Active Substance: FLUOROURACIL
     Indication: UNDIFFERENTIATED NASOPHARYNGEAL CARCINOMA
     Dosage: 1000 MG/M2 PER 24 HOURS WAS ADMINISTERED VIA INTRAVENOUS INFUSION
  2. NEDAPLATIN [Suspect]
     Active Substance: NEDAPLATIN
     Indication: UNDIFFERENTIATED NASOPHARYNGEAL CARCINOMA
     Dosage: 24 HOURS INFUSION OF NDP AT A DOSE OF 100MG/M2 PER 24 HOURS (DAY 6).
     Route: 042

REACTIONS (2)
  - Liver disorder [Unknown]
  - Renal impairment [Recovered/Resolved]
